FAERS Safety Report 9525627 (Version 3)
Quarter: 2013Q4

REPORT INFORMATION
  Report Type: Spontaneous
  Country: JP (occurrence: JP)
  Receive Date: 20130916
  Receipt Date: 20131004
  Transmission Date: 20140711
  Serious: Yes (Death)
  Sender: FDA-Public Use
  Company Number: JP-SANOFI-AVENTIS-2013SA080407

PATIENT
  Age: 79 Year
  Sex: Male
  Weight: 53 kg

DRUGS (4)
  1. TAXOTERE [Suspect]
     Indication: PROSTATE CANCER
     Route: 042
     Dates: start: 20130704, end: 20130704
  2. DECADRON [Suspect]
     Indication: PROSTATE CANCER
     Route: 048
     Dates: start: 20130704
  3. ZOLADEX [Concomitant]
     Indication: PROSTATE CANCER
     Dosage: DOSE; 3.6 MG/28 DAYS, FORM; DEPOT
     Route: 058
     Dates: start: 20110603
  4. SEROTONE [Concomitant]
     Indication: PREMEDICATION

REACTIONS (6)
  - Interstitial lung disease [Fatal]
  - Pyrexia [Fatal]
  - Dyspnoea [Fatal]
  - Cough [Fatal]
  - Productive cough [Fatal]
  - C-reactive protein increased [Fatal]
